FAERS Safety Report 12632690 (Version 2)
Quarter: 2016Q3

REPORT INFORMATION
  Report Type: Spontaneous
  Country: US (occurrence: US)
  Receive Date: 20160808
  Receipt Date: 20160808
  Transmission Date: 20161109
  Serious: No
  Sender: FDA-Public Use
  Company Number: US-BEH-2015056519

PATIENT
  Sex: Female
  Weight: 53 kg

DRUGS (27)
  1. HIZENTRA [Suspect]
     Active Substance: HUMAN IMMUNOGLOBULIN G
     Indication: HYPOGAMMAGLOBULINAEMIA
     Route: 058
  2. OMNICEF [Concomitant]
     Active Substance: CEFDINIR
  3. ADVIL [Concomitant]
     Active Substance: IBUPROFEN
  4. ACETAMINOPHEN. [Concomitant]
     Active Substance: ACETAMINOPHEN
  5. BUTALBITAL-ACETAMINOPHEN-CAFFE [Concomitant]
  6. CITALOPRAM [Concomitant]
     Active Substance: CITALOPRAM HYDROBROMIDE
  7. VOLTAREN [Concomitant]
     Active Substance: DICLOFENAC SODIUM
  8. FLUTICASONE PROPIONATE. [Concomitant]
     Active Substance: FLUTICASONE PROPIONATE
  9. ESTRADIOL. [Concomitant]
     Active Substance: ESTRADIOL
  10. VITAMIN D3 [Concomitant]
     Active Substance: CHOLECALCIFEROL
  11. PRILOSEC [Concomitant]
     Active Substance: OMEPRAZOLE MAGNESIUM
  12. OMEGA-3 ACIDS [Concomitant]
     Active Substance: OMEGA-3 FATTY ACIDS
  13. MUPIROCIN OINT [Concomitant]
  14. PROAIR HFA [Concomitant]
     Active Substance: ALBUTEROL SULFATE
  15. MUCINEX D [Concomitant]
     Active Substance: GUAIFENESIN\PSEUDOEPHEDRINE HYDROCHLORIDE
  16. EPIPEN [Concomitant]
     Active Substance: EPINEPHRINE
  17. HIZENTRA [Suspect]
     Active Substance: HUMAN IMMUNOGLOBULIN G
     Indication: COMBINED IMMUNODEFICIENCY
     Route: 058
  18. CALTRATE [Concomitant]
     Active Substance: CALCIUM CARBONATE
  19. BENZONATATE. [Concomitant]
     Active Substance: BENZONATATE
  20. CELEXA [Concomitant]
     Active Substance: CITALOPRAM HYDROBROMIDE
  21. SPIRIVA [Concomitant]
     Active Substance: TIOTROPIUM BROMIDE MONOHYDRATE
  22. LIDOCAINE. [Concomitant]
     Active Substance: LIDOCAINE
  23. AMBIEN [Concomitant]
     Active Substance: ZOLPIDEM TARTRATE
  24. ZANTAC [Concomitant]
     Active Substance: RANITIDINE HYDROCHLORIDE
  25. MULTIVITAMINS WITH MINERALS [Concomitant]
     Active Substance: MINERALS\VITAMINS
  26. OMEPRAZOLE. [Concomitant]
     Active Substance: OMEPRAZOLE
  27. DIPHENHYDRAMINE. [Concomitant]
     Active Substance: DIPHENHYDRAMINE

REACTIONS (1)
  - Sinusitis [Unknown]
